FAERS Safety Report 23973781 (Version 1)
Quarter: 2024Q2

REPORT INFORMATION
  Report Type: Report from Study
  Country: TW (occurrence: None)
  Receive Date: 20240613
  Receipt Date: 20240613
  Transmission Date: 20240715
  Serious: Yes (Hospitalization)
  Sender: FDA-Public Use
  Company Number: 2024A133348

PATIENT
  Age: 42 Year
  Sex: Female

DRUGS (1)
  1. FASENRA [Suspect]
     Active Substance: BENRALIZUMAB
     Indication: Asthma
     Dosage: 30.0MG UNKNOWN
     Route: 058
     Dates: start: 2022

REACTIONS (3)
  - Oedema peripheral [Not Recovered/Not Resolved]
  - Oedematous kidney [Unknown]
  - Asthma [Unknown]

NARRATIVE: CASE EVENT DATE: 20240501
